FAERS Safety Report 10985247 (Version 1)
Quarter: 2015Q2

REPORT INFORMATION
  Report Type: Spontaneous
  Country: US (occurrence: None)
  Receive Date: 20150403
  Receipt Date: 20150403
  Transmission Date: 20150821
  Serious: Yes (Life-Threatening, Hospitalization)
  Sender: FDA-Public Use
  Company Number: None

PATIENT
  Age: 9 Month
  Sex: Female
  Weight: 113 kg

DRUGS (5)
  1. OMNIPAQUE [Suspect]
     Active Substance: IOHEXOL
     Indication: ANGIOGRAM
     Route: 042
  2. HEPARIN [Concomitant]
     Active Substance: HEPARIN SODIUM
  3. LIDOCAINE. [Concomitant]
     Active Substance: LIDOCAINE
  4. FENTANYL. [Concomitant]
     Active Substance: FENTANYL
  5. MIDAZOLAM [Concomitant]
     Active Substance: MIDAZOLAM\MIDAZOLAM HYDROCHLORIDE

REACTIONS (8)
  - Somnolence [None]
  - Hyperhidrosis [None]
  - Nausea [None]
  - Contrast media reaction [None]
  - Abdominal pain [None]
  - Feeling hot [None]
  - Flushing [None]
  - Hypotension [None]

NARRATIVE: CASE EVENT DATE: 20150331
